FAERS Safety Report 4303371-X (Version None)
Quarter: 2004Q1

REPORT INFORMATION
  Report Type: 
  Country: None (occurrence: None)
  Receive Date: 20040223
  Receipt Date: 20040213
  Transmission Date: 20041129
  Serious: Yes (Hospitalization)
  Sender: FDA-Public Use
  Company Number: HQ2769202JUL2001

PATIENT
  Age: 81 Year
  Sex: Male

DRUGS (5)
  1. SERESTA (OXAZEPAM, UNSPEC) [Suspect]
     Dosage: ORAL
     Route: 048
  2. TERCIAN (CYAMEMAZINE) [Concomitant]
  3. RISPERDAL [Concomitant]
  4. ARICEPT [Concomitant]
  5. FOLIC ACID [Concomitant]

REACTIONS (3)
  - DELIRIUM [None]
  - FALL [None]
  - PNEUMONIA ASPIRATION [None]
